FAERS Safety Report 21083889 (Version 9)
Quarter: 2023Q1

REPORT INFORMATION
  Report Type: Report from Study
  Country: MY (occurrence: None)
  Receive Date: 20220714
  Receipt Date: 20230316
  Transmission Date: 20230418
  Serious: Yes (Hospitalization)
  Sender: FDA-Public Use
  Company Number: MY-Eisai Medical Research-EC-2022-119003

PATIENT
  Age: 64 Year
  Sex: Female
  Weight: 58 kg

DRUGS (11)
  1. LENVATINIB [Suspect]
     Active Substance: LENVATINIB
     Indication: Renal cell carcinoma
     Dosage: STARTING DOSE AT 20 MILLIGRAM, FLUCTUATED DOSAGE
     Route: 048
     Dates: start: 20220308, end: 20220705
  2. PEMBROLIZUMAB [Suspect]
     Active Substance: PEMBROLIZUMAB
     Indication: Renal cell carcinoma
     Route: 041
     Dates: start: 20220308, end: 20220308
  3. BELZUTIFAN [Suspect]
     Active Substance: BELZUTIFAN
     Indication: Renal cell carcinoma
     Dosage: STARTING DOSE AT 120 MILLIGRAM, FLUCTUATED DOSAGE
     Route: 048
     Dates: start: 20220308, end: 20220705
  4. METFORMIN HYDROCHLORIDE [Concomitant]
     Active Substance: METFORMIN HYDROCHLORIDE
     Dates: start: 200605
  5. MIXTARD [INSULIN;ISOPHANE INSULIN] [Concomitant]
     Dates: start: 201802
  6. VENTOLIN [Concomitant]
     Active Substance: ALBUTEROL SULFATE
     Dates: start: 200001
  7. TRAMADOL HYDROCHLORIDE [Concomitant]
     Active Substance: TRAMADOL HYDROCHLORIDE
     Dates: start: 202109
  8. METHYLCOBALAMIN [Concomitant]
     Active Substance: METHYLCOBALAMIN
     Dates: start: 201802
  9. NUELIN [THEOPHYLLINE] [Concomitant]
     Dates: start: 201802
  10. AMLODIPINE [Concomitant]
     Active Substance: AMLODIPINE BESYLATE
     Dates: start: 200605
  11. SIMVASTATIN [Concomitant]
     Active Substance: SIMVASTATIN
     Dates: start: 200605

REACTIONS (1)
  - Cardiac disorder [Not Recovered/Not Resolved]

NARRATIVE: CASE EVENT DATE: 20220706
